FAERS Safety Report 19397721 (Version 1)
Quarter: 2021Q2

REPORT INFORMATION
  Report Type: Spontaneous
  Country: US (occurrence: US)
  Receive Date: 20210609
  Receipt Date: 20210609
  Transmission Date: 20210717
  Serious: Yes (Other)
  Sender: FDA-Public Use
  Company Number: US-SA-2021SA189069

PATIENT
  Age: 69 Year
  Sex: Female

DRUGS (3)
  1. ZYRTEC [Concomitant]
     Active Substance: CETIRIZINE HYDROCHLORIDE
     Indication: SWOLLEN TONGUE
  2. ALLEGRA ALLERGY [Suspect]
     Active Substance: FEXOFENADINE HYDROCHLORIDE
     Indication: SWOLLEN TONGUE
     Dosage: 2 ALLEGRA TABS IN THE MORNING; DOSAGE : ONCE A DAY
  3. XYZAL ALLERGY 24HR [Suspect]
     Active Substance: LEVOCETIRIZINE DIHYDROCHLORIDE
     Indication: SWOLLEN TONGUE
     Dosage: 2 XYZAL IN THE EVENING

REACTIONS (3)
  - Abdominal discomfort [Recovering/Resolving]
  - Off label use [Unknown]
  - Gastric infection [Recovering/Resolving]
